FAERS Safety Report 4579276-6 (Version None)
Quarter: 2005Q1

REPORT INFORMATION
  Report Type: 
  Country: None (occurrence: None)
  Receive Date: 20050209
  Receipt Date: 20050125
  Transmission Date: 20050727
  Serious: Yes (Life-Threatening)
  Sender: FDA-Public Use
  Company Number: 2004AP05472

PATIENT
  Age: 39 Year
  Sex: Female
  Weight: 60 kg

DRUGS (12)
  1. SEROQUEL [Suspect]
     Indication: SCHIZOPHRENIA
     Dates: start: 20000101
  2. LEVOMEPROMAZINE [Suspect]
     Indication: SCHIZOPHRENIA
     Dates: start: 20000101
  3. THIORIDAZINE HCL [Suspect]
  4. PROPOFOL [Concomitant]
  5. VECURONIUM [Concomitant]
  6. FENTANYL [Concomitant]
  7. NITROUS OXIDE [Concomitant]
  8. OXYGEN [Concomitant]
  9. SEVOFLURANE [Concomitant]
  10. LIDOCAINE [Concomitant]
  11. BIPERIDEN HYDROCHLORIDE TAB [Concomitant]
  12. EPERISONE [Concomitant]

REACTIONS (5)
  - FLUSHING [None]
  - HAEMODYNAMIC INSTABILITY [None]
  - HYPOTENSION [None]
  - OXYGEN SATURATION DECREASED [None]
  - PROCEDURAL COMPLICATION [None]
